FAERS Safety Report 16724096 (Version 1)
Quarter: 2019Q3

REPORT INFORMATION
  Report Type: Spontaneous
  Country: CN (occurrence: CN)
  Receive Date: 20190821
  Receipt Date: 20190821
  Transmission Date: 20191005
  Serious: Yes (Hospitalization)
  Sender: FDA-Public Use
  Company Number: CN-BAYER-2019-149899

PATIENT
  Sex: Male

DRUGS (3)
  1. SULPERAZONE [Suspect]
     Active Substance: CEFOPERAZONE SODIUM\SULBACTAM SODIUM
     Indication: ANTI-INFECTIVE THERAPY
     Dosage: 3 G, TID
     Route: 041
     Dates: start: 20190320, end: 20190402
  2. DOXOFYLLINE AND GLUCOSE [Suspect]
     Active Substance: DOXOFYLLINE
     Indication: ANTI-INFECTIVE THERAPY
     Dosage: 0.3 G, QD
     Route: 041
     Dates: start: 20190320, end: 20190406
  3. AVELOX [Suspect]
     Active Substance: MOXIFLOXACIN HYDROCHLORIDE
     Indication: ANTI-INFECTIVE THERAPY
     Dosage: 0.4 G, QD
     Route: 041
     Dates: start: 20190320, end: 20190402

REACTIONS (4)
  - Rash pustular [Recovering/Resolving]
  - Rash papular [Recovering/Resolving]
  - Rash macular [Recovering/Resolving]
  - Skin ulcer [Recovering/Resolving]

NARRATIVE: CASE EVENT DATE: 20190330
